FAERS Safety Report 21992383 (Version 1)
Quarter: 2023Q1

REPORT INFORMATION
  Report Type: Report from Study
  Country: US (occurrence: US)
  Receive Date: 20230215
  Receipt Date: 20230215
  Transmission Date: 20230418
  Serious: Yes (Death, Other)
  Sender: FDA-Public Use
  Company Number: US-TAKEDA-2023TUS016174

PATIENT
  Sex: Female
  Weight: 59.04 kg

DRUGS (4)
  1. TEDUGLUTIDE [Suspect]
     Active Substance: TEDUGLUTIDE
     Indication: Short-bowel syndrome
     Dosage: 2.975 MILLIGRAM, QD
     Route: 058
     Dates: start: 20220728
  2. TEDUGLUTIDE [Suspect]
     Active Substance: TEDUGLUTIDE
     Indication: Short-bowel syndrome
     Dosage: 2.975 MILLIGRAM, QD
     Route: 058
     Dates: start: 20220728
  3. TEDUGLUTIDE [Suspect]
     Active Substance: TEDUGLUTIDE
     Indication: Short-bowel syndrome
     Dosage: 2.975 MILLIGRAM, QD
     Route: 058
     Dates: start: 20220728
  4. TEDUGLUTIDE [Suspect]
     Active Substance: TEDUGLUTIDE
     Indication: Short-bowel syndrome
     Dosage: 2.975 MILLIGRAM, QD
     Route: 058
     Dates: start: 20220728

REACTIONS (1)
  - Death [Fatal]
